FAERS Safety Report 5253974-3 (Version None)
Quarter: 2007Q1

REPORT INFORMATION
  Report Type: 
  Country: None (occurrence: None)
  Receive Date: 20070302
  Receipt Date: 20070223
  Transmission Date: 20070707
  Serious: Yes (Hospitalization)
  Sender: FDA-Public Use
  Company Number: SE-JNJFOC-20070206057

PATIENT
  Age: 87 Year
  Sex: Male

DRUGS (8)
  1. REMICADE [Suspect]
     Dosage: LATEST INFUSION
     Route: 042
  2. REMICADE [Suspect]
     Indication: RHEUMATOID ARTHRITIS
     Dosage: FOR SEVERAL YEARS
     Route: 042
  3. METHOTREXATE [Suspect]
     Indication: RHEUMATOID ARTHRITIS
     Route: 048
  4. DICLOFENAC SODIUM [Suspect]
     Indication: DRUG USE FOR UNKNOWN INDICATION
     Route: 065
  5. FOLACIN [Concomitant]
     Route: 065
  6. PANODIL [Concomitant]
     Route: 065
  7. PREDNISOLONE [Concomitant]
     Route: 065
  8. CALCIPOS [Concomitant]
     Route: 065

REACTIONS (2)
  - MOUTH HAEMORRHAGE [None]
  - PANCYTOPENIA [None]
